FAERS Safety Report 4570512-9 (Version None)
Quarter: 2005Q1

REPORT INFORMATION
  Report Type: 
  Country: None (occurrence: None)
  Receive Date: 20050204
  Receipt Date: 20041007
  Transmission Date: 20050727
  Serious: Yes (Death, Other)
  Sender: FDA-Public Use
  Company Number: PHNU2004DE03462

PATIENT
  Age: 65 Year
  Sex: Female
  Weight: 47 kg

DRUGS (10)
  1. HUMALOG [Concomitant]
     Indication: DIABETES MELLITUS
  2. LANTUS [Concomitant]
     Indication: DIABETES MELLITUS
  3. RANITIDINE [Concomitant]
     Route: 065
  4. ALLOPURINOL [Concomitant]
     Route: 048
  5. UNAT [Concomitant]
     Route: 065
  6. ACERBON ^ZENECA^ [Concomitant]
     Route: 048
  7. ACETYLSALICYLIC ACID SRT [Concomitant]
     Dosage: 100 MG, QD
     Route: 048
  8. DIGITOXIN TAB [Concomitant]
     Indication: CARDIAC FAILURE
     Dosage: 0.07 MG, QD
     Route: 048
  9. CHEMOTHERAPEUTICS,OTHER [Concomitant]
     Indication: NON-HODGKIN'S LYMPHOMA
     Route: 065
  10. ZOMETA [Suspect]
     Indication: NON-HODGKIN'S LYMPHOMA
     Dosage: 4 MG, QMO
     Route: 042
     Dates: start: 20021001

REACTIONS (9)
  - BONE LESION [None]
  - DENTAL OPERATION [None]
  - FEEDING DISORDER [None]
  - GINGIVAL ULCERATION [None]
  - IMPAIRED HEALING [None]
  - LEFT VENTRICULAR FAILURE [None]
  - MOUTH ULCERATION [None]
  - OSTEONECROSIS [None]
  - WEIGHT DECREASED [None]
